FAERS Safety Report 6938153-3 (Version None)
Quarter: 2010Q3

REPORT INFORMATION
  Report Type: 
  Country: None (occurrence: None)
  Receive Date: 20100824
  Receipt Date: 20100811
  Transmission Date: 20110219
  Serious: No
  Sender: FDA-Public Use
  Company Number: US-JNJFOC-20100804623

PATIENT
  Sex: Female
  Weight: 61.24 kg

DRUGS (10)
  1. FENTANYL CITRATE [Suspect]
     Indication: PAIN
     Route: 062
  2. POTASSIUM CITRATE [Concomitant]
     Indication: NEPHROLITHIASIS
     Route: 048
  3. PREDNISONE [Concomitant]
     Indication: ARTHRITIS
     Route: 048
  4. FOLIC AICD [Concomitant]
     Indication: ARTHRITIS
     Route: 048
  5. METHOTREXATE [Concomitant]
     Indication: ARTHRITIS
     Route: 048
  6. WARFARIN [Concomitant]
     Indication: INDWELLING CATHETER MANAGEMENT
     Route: 048
  7. NABUMETONE [Concomitant]
     Indication: ARTHRITIS
     Route: 048
  8. CLONAZEPAM [Concomitant]
     Indication: RESTLESSNESS
     Route: 048
  9. CLONAZEPAM [Concomitant]
     Route: 048
  10. METOPROLOL [Concomitant]
     Indication: BLOOD PRESSURE
     Route: 048

REACTIONS (2)
  - NAIL DISORDER [None]
  - WRONG TECHNIQUE IN DRUG USAGE PROCESS [None]
